FAERS Safety Report 16151808 (Version 1)
Quarter: 2019Q2

REPORT INFORMATION
  Report Type: Spontaneous
  Country: US (occurrence: US)
  Receive Date: 20190403
  Receipt Date: 20190403
  Transmission Date: 20190711
  Serious: Yes (Other)
  Sender: FDA-Public Use
  Company Number: US-TEVA-2018-US-974256

PATIENT
  Age: 49 Year
  Sex: Female

DRUGS (6)
  1. CEDIRANIB. [Suspect]
     Active Substance: CEDIRANIB
     Indication: OVARIAN EPITHELIAL CANCER
     Route: 065
     Dates: start: 201509, end: 201603
  2. CARBOPLATIN. [Suspect]
     Active Substance: CARBOPLATIN
     Indication: OVARIAN EPITHELIAL CANCER
     Dosage: RECEIVED 4 CYCLES
     Route: 065
     Dates: end: 201501
  3. CARBOPLATIN. [Suspect]
     Active Substance: CARBOPLATIN
     Indication: OVARIAN EPITHELIAL CANCER
     Dosage: RECEIVED 8 CYCLES
     Route: 065
  4. OLAPARIB. [Suspect]
     Active Substance: OLAPARIB
     Indication: OVARIAN EPITHELIAL CANCER
     Dosage: RECEIVED 13 CYCLES
     Route: 065
  5. DOXIL [Suspect]
     Active Substance: DOXORUBICIN HYDROCHLORIDE
     Indication: OVARIAN EPITHELIAL CANCER
     Dosage: RECEIVED 8 CYCLES
     Route: 065
  6. MEDI4736 [Suspect]
     Active Substance: DURVALUMAB
     Indication: OVARIAN EPITHELIAL CANCER
     Route: 065
     Dates: start: 201509, end: 201603

REACTIONS (3)
  - Neuropathy peripheral [Unknown]
  - Drug ineffective [Unknown]
  - Anaemia [Unknown]
